FAERS Safety Report 8482628-5 (Version None)
Quarter: 2012Q3

REPORT INFORMATION
  Report Type: 
  Country: None (occurrence: None)
  Receive Date: 20120702
  Receipt Date: 20120627
  Transmission Date: 20120928
  Serious: Yes (Hospitalization, Disabling, Other)
  Sender: FDA-Public Use
  Company Number: US-MERCK-1203USA03294

PATIENT
  Age: 79 Year
  Sex: Female
  Weight: 59 kg

DRUGS (11)
  1. FOSAMAX [Suspect]
     Indication: OSTEOPOROSIS
     Route: 048
     Dates: start: 20010503, end: 20070101
  2. FOSAMAX [Suspect]
     Route: 048
     Dates: start: 19990511
  3. ALENDRONATE SODIUM [Suspect]
     Indication: OSTEOPENIA
     Route: 048
     Dates: start: 20010503, end: 20070101
  4. ALENDRONATE SODIUM [Suspect]
     Indication: OSTEOPENIA
     Route: 065
     Dates: start: 20081001
  5. FOSAMAX [Suspect]
     Route: 048
     Dates: start: 20000601, end: 20011201
  6. FOSAMAX [Suspect]
     Route: 048
     Dates: start: 20000601, end: 20011201
  7. FOSAMAX PLUS D [Suspect]
     Indication: OSTEOPENIA
     Route: 048
     Dates: start: 20070301
  8. ALENDRONATE SODIUM [Suspect]
     Indication: OSTEOPOROSIS
     Route: 065
     Dates: start: 20081001
  9. FOSAMAX PLUS D [Suspect]
     Indication: OSTEOPOROSIS
     Route: 048
     Dates: start: 20070301
  10. ATENOLOL [Concomitant]
     Route: 065
     Dates: start: 19970101
  11. FOSAMAX [Suspect]
     Route: 048
     Dates: start: 19990511

REACTIONS (36)
  - HYPERTENSION [None]
  - MUCOSAL ATROPHY [None]
  - MALABSORPTION [None]
  - LIPASE DECREASED [None]
  - URINARY TRACT INFECTION [None]
  - CARPAL TUNNEL SYNDROME [None]
  - NAUSEA [None]
  - ULNA FRACTURE [None]
  - ADVERSE EVENT [None]
  - SCOLIOSIS [None]
  - HIATUS HERNIA [None]
  - ROTATOR CUFF SYNDROME [None]
  - APPENDIX DISORDER [None]
  - FEMUR FRACTURE [None]
  - ABDOMINAL DISCOMFORT [None]
  - FOREIGN BODY [None]
  - ATRIAL FIBRILLATION [None]
  - ADENOIDAL DISORDER [None]
  - MIGRAINE [None]
  - DYSPEPSIA [None]
  - ARTHRITIS [None]
  - BACK PAIN [None]
  - OSTEOPOROSIS [None]
  - HAEMATOCRIT DECREASED [None]
  - LOW TURNOVER OSTEOPATHY [None]
  - PANCREATIC CYST [None]
  - MITRAL VALVE PROLAPSE [None]
  - LACERATION [None]
  - VITAMIN D DEFICIENCY [None]
  - HIP FRACTURE [None]
  - STRESS FRACTURE [None]
  - TONSILLAR DISORDER [None]
  - SPINAL COLUMN STENOSIS [None]
  - GLAUCOMA [None]
  - PUBIS FRACTURE [None]
  - DIARRHOEA [None]
